FAERS Safety Report 9355184 (Version 1)
Quarter: 2013Q2

REPORT INFORMATION
  Report Type: Spontaneous
  Country: US (occurrence: US)
  Receive Date: 20130619
  Receipt Date: 20130619
  Transmission Date: 20140414
  Serious: Yes (Other)
  Sender: FDA-Public Use
  Company Number: PHEH2013US012988

PATIENT
  Sex: Male

DRUGS (1)
  1. FANAPT [Suspect]
     Dosage: TWO PER DAY

REACTIONS (4)
  - Hypersensitivity [Unknown]
  - Somnolence [Unknown]
  - Eyelid oedema [Unknown]
  - Arrhythmia [Unknown]
